FAERS Safety Report 4319034-0 (Version None)
Quarter: 2004Q1

REPORT INFORMATION
  Report Type: 
  Country: None (occurrence: None)
  Receive Date: 20040316
  Receipt Date: 20040304
  Transmission Date: 20041129
  Serious: Yes (Hospitalization)
  Sender: FDA-Public Use
  Company Number: 04P-028-0252695-00

PATIENT
  Age: 69 Year
  Sex: Female

DRUGS (14)
  1. BIAXIN XL [Suspect]
     Indication: CHRONIC OBSTRUCTIVE AIRWAYS DISEASE
     Dosage: 1000 MG, 1 IN 1 D, PER ORAL
     Route: 048
     Dates: start: 20040125, end: 20040204
  2. DOXYCYCLINE [Suspect]
     Indication: CHRONIC OBSTRUCTIVE AIRWAYS DISEASE
     Dosage: 500 MG, 2 IN 1 D, PER ORAL
     Route: 048
     Dates: start: 20040125, end: 20040204
  3. COMBIVENT [Suspect]
     Indication: CHRONIC OBSTRUCTIVE AIRWAYS DISEASE
     Dosage: 2 PUFF, 4 IN 1 D, INHALATION
     Route: 055
     Dates: start: 20040125, end: 20040211
  4. PREDNISONE [Suspect]
     Indication: CHRONIC OBSTRUCTIVE AIRWAYS DISEASE
     Dosage: 40 MG, 1 IN 1 D, PER ORAL
     Route: 048
     Dates: start: 20040125, end: 20040204
  5. PLACEBO [Suspect]
     Indication: CHRONIC OBSTRUCTIVE AIRWAYS DISEASE
     Dates: start: 20040125, end: 20040204
  6. SERETIDE MITE [Concomitant]
  7. BECLOMETHASONE DIPROPIONATE [Concomitant]
  8. SINGULAIR [Concomitant]
  9. APO K [Concomitant]
  10. ASOPHAN [Concomitant]
  11. FUROSEMIDE [Concomitant]
  12. COUMADIN [Concomitant]
  13. LISINOPRIL [Concomitant]
  14. SPIRIVA [Concomitant]

REACTIONS (4)
  - COUGH [None]
  - DYSPNOEA EXACERBATED [None]
  - GLUCOSE URINE PRESENT [None]
  - TACHYPNOEA [None]
